FAERS Safety Report 17758245 (Version 1)
Quarter: 2020Q2

REPORT INFORMATION
  Report Type: Spontaneous
  Country: US (occurrence: US)
  Receive Date: 20200507
  Receipt Date: 20200507
  Transmission Date: 20200714
  Serious: Yes (Hospitalization)
  Sender: FDA-Public Use
  Company Number: US-BAYER-2020-060164

PATIENT
  Age: 65 Year
  Sex: Female
  Weight: 86.89 kg

DRUGS (5)
  1. BAYER LOW DOSE [Suspect]
     Active Substance: ASPIRIN
     Indication: GLAUCOMA
     Dosage: 81 MG, QD
     Route: 048
     Dates: start: 2002
  2. CENTRUM SILVER +50 [Concomitant]
     Indication: NUTRITIONAL SUPPLEMENTATION
     Dosage: UNK
     Dates: start: 2009
  3. BRIMONIDINE TARTRATE;TIMOLOL MALEATE [Concomitant]
     Indication: GLAUCOMA
     Dosage: UNK
     Dates: start: 201609
  4. LISINOPRIL. [Concomitant]
     Active Substance: LISINOPRIL
     Indication: HYPERTENSION
     Dosage: UNK
     Dates: start: 2009
  5. BAYER LOW DOSE [Suspect]
     Active Substance: ASPIRIN
     Indication: THROMBOSIS PROPHYLAXIS

REACTIONS (4)
  - Anaemia [Unknown]
  - Dizziness [Unknown]
  - Faeces discoloured [Unknown]
  - Product use in unapproved indication [None]

NARRATIVE: CASE EVENT DATE: 20200229
